FAERS Safety Report 25651814 (Version 1)
Quarter: 2025Q3

REPORT INFORMATION
  Report Type: Spontaneous
  Country: EU (occurrence: EU)
  Receive Date: 20250806
  Receipt Date: 20250806
  Transmission Date: 20251021
  Serious: Yes (Death)
  Sender: REGENERON
  Company Number: None

PATIENT
  Age: 66 Year
  Sex: Male
  Weight: 96 kg

DRUGS (1)
  1. LIBTAYO [Suspect]
     Active Substance: CEMIPLIMAB-RWLC
     Indication: Skin squamous cell carcinoma recurrent
     Dosage: 350 MG/M2, Q3W
     Route: 042
     Dates: start: 20250429, end: 20250522

REACTIONS (2)
  - Troponin increased [Fatal]
  - N-terminal prohormone brain natriuretic peptide increased [Fatal]

NARRATIVE: CASE EVENT DATE: 20250612
